FAERS Safety Report 5136863-4 (Version None)
Quarter: 2006Q4

REPORT INFORMATION
  Report Type: 
  Country: None (occurrence: None)
  Receive Date: 20061023
  Receipt Date: 20061013
  Transmission Date: 20070319
  Serious: Yes (Death, Other)
  Sender: FDA-Public Use
  Company Number: 2006087422

PATIENT
  Age: 50 Year
  Sex: Male

DRUGS (6)
  1. ZELDOX (CAPSULES) (ZIPRASIDONE) [Suspect]
     Indication: SCHIZOPHRENIA, PARANOID TYPE
     Dosage: 120 MG (60 MG, 2 IN 1 D), ORAL
     Route: 048
     Dates: start: 20030525, end: 20060101
  2. COCAINE (COCAINE) [Suspect]
     Indication: DRUG USE FOR UNKNOWN INDICATION
  3. AMPHETAMINE (AMFETAMINE) [Suspect]
     Indication: DRUG USE FOR UNKNOWN INDICATION
  4. RISPERDAL [Concomitant]
  5. CLORAZEPATE DIPOTASSIUM [Concomitant]
  6. VIAGRA [Concomitant]

REACTIONS (3)
  - DRUG INTERACTION [None]
  - DRUG TOXICITY [None]
  - SUDDEN DEATH [None]
